FAERS Safety Report 5422890-6 (Version None)
Quarter: 2007Q3

REPORT INFORMATION
  Report Type: 
  Country: None (occurrence: None)
  Receive Date: 20070820
  Receipt Date: 20070808
  Transmission Date: 20080115
  Serious: Yes (Hospitalization)
  Sender: FDA-Public Use
  Company Number: 2007AL003243

PATIENT
  Age: 18 Year
  Sex: Female

DRUGS (1)
  1. METOCLOPRAMIDE [Suspect]
     Indication: MALAISE
     Dosage: 10 MG; TID
     Dates: start: 20070725, end: 20070730

REACTIONS (9)
  - BALANCE DISORDER [None]
  - DYSPHAGIA [None]
  - FEELING ABNORMAL [None]
  - IMPAIRED WORK ABILITY [None]
  - LETHARGY [None]
  - ORAL PAIN [None]
  - SOMNOLENCE [None]
  - SPEECH DISORDER [None]
  - TRISMUS [None]
